FAERS Safety Report 9511572 (Version 1)
Quarter: 2013Q3

REPORT INFORMATION
  Report Type: Spontaneous
  Country: FR (occurrence: FR)
  Receive Date: 20130910
  Receipt Date: 20130910
  Transmission Date: 20140515
  Serious: Yes (Hospitalization)
  Sender: FDA-Public Use
  Company Number: PHHY2013FR098428

PATIENT
  Age: 84 Year
  Sex: Male

DRUGS (9)
  1. GLIVEC [Suspect]
     Indication: CHRONIC MYELOID LEUKAEMIA
     Dosage: 400 MG, QD
     Route: 048
     Dates: start: 20130702, end: 20130724
  2. METHOTREXATE [Suspect]
     Dosage: UNK UKN, UNK
     Route: 048
     Dates: end: 20130724
  3. METHOTREXATE [Suspect]
     Dosage: UNK UKN, UNK
     Route: 048
     Dates: start: 20130805
  4. COUMADINE [Suspect]
     Dosage: UNK UKN, UNK
     Route: 048
     Dates: end: 20130724
  5. MIANSERINE [Concomitant]
     Dosage: UNK UKN, UNK
  6. FOSAVANCE [Concomitant]
     Dosage: UNK UKN, UNK
  7. CORTANCYL [Concomitant]
     Dosage: UNK UKN, UNK
  8. MICARDIS [Concomitant]
     Dosage: UNK UKN, UNK
  9. SPECIAFOLDINE [Concomitant]
     Dosage: UNK UKN, UNK

REACTIONS (3)
  - Hepatocellular injury [Recovering/Resolving]
  - Alanine aminotransferase increased [Unknown]
  - Cardiovascular insufficiency [Recovered/Resolved]
